FAERS Safety Report 5014447-6 (Version None)
Quarter: 2006Q2

REPORT INFORMATION
  Report Type: 
  Country: None (occurrence: None)
  Receive Date: 20060525
  Receipt Date: 20060517
  Transmission Date: 20061013
  Serious: Yes (Hospitalization, Other)
  Sender: FDA-Public Use
  Company Number: HQWYE550228MAR06

PATIENT
  Age: 48 Year
  Sex: Male

DRUGS (7)
  1. NEORAL [Suspect]
     Indication: PROPHYLAXIS AGAINST TRANSPLANT REJECTION
     Dosage: 200 MG 2X PER 1 DAY ORAL
     Route: 048
     Dates: start: 20060110
  2. VALGANCICLOVIR HCL [Suspect]
     Indication: CYTOMEGALOVIRUS INFECTION
     Dosage: 900 MG 1X PER 1 DAY ORAL
     Route: 048
     Dates: start: 20060227, end: 20060101
  3. PREDNISONE TAB [Concomitant]
  4. MYCOPHENOLATE MOFETIL [Concomitant]
  5. BACTRIM DS [Concomitant]
  6. FOLIC ACID [Concomitant]
  7. PANTOPRAZOLE SODIUM [Concomitant]

REACTIONS (8)
  - ASTHENIA [None]
  - BLOOD OSMOLARITY DECREASED [None]
  - COMPLICATIONS OF TRANSPLANTED KIDNEY [None]
  - CONFUSIONAL STATE [None]
  - HAEMODIALYSIS [None]
  - HYPONATRAEMIA [None]
  - RENAL FAILURE ACUTE [None]
  - RENAL TUBULAR NECROSIS [None]
